FAERS Safety Report 4675722-8 (Version None)
Quarter: 2005Q2

REPORT INFORMATION
  Report Type: 
  Country: None (occurrence: None)
  Receive Date: 20050527
  Receipt Date: 20050222
  Transmission Date: 20051028
  Serious: No
  Sender: FDA-Public Use
  Company Number: US-BRISTOL-MYERS SQUIBB COMPANY-12870952

PATIENT
  Age: 5 Decade
  Sex: Male
  Weight: 73 kg

DRUGS (6)
  1. ERBITUX [Suspect]
     Indication: TONGUE CANCER METASTATIC
     Dates: start: 20050201, end: 20050201
  2. BENADRYL [Concomitant]
     Indication: PREMEDICATION
     Dates: start: 20050201, end: 20050201
  3. DEXAMETHASONE [Concomitant]
     Indication: PREMEDICATION
     Dates: start: 20050201, end: 20050201
  4. CARBOPLATIN [Concomitant]
  5. TAXOL [Concomitant]
  6. RADIATION THERAPY [Concomitant]

REACTIONS (1)
  - DERMATITIS ACNEIFORM [None]
